FAERS Safety Report 6097228-4 (Version None)
Quarter: 2009Q1

REPORT INFORMATION
  Report Type: 
  Country: None (occurrence: None)
  Receive Date: 20090227
  Receipt Date: 20090224
  Transmission Date: 20090719
  Serious: Yes (Other)
  Sender: FDA-Public Use
  Company Number: B0559167A

PATIENT
  Age: 12 Year
  Sex: Female
  Weight: 37 kg

DRUGS (3)
  1. RELENZA [Suspect]
     Indication: INFLUENZA
     Dosage: 10MG TWICE PER DAY
     Route: 055
     Dates: start: 20090128, end: 20090129
  2. POLARAMINE [Concomitant]
     Indication: INFLUENZA
     Dosage: 2MG THREE TIMES PER DAY
     Route: 048
     Dates: start: 20090128, end: 20090130
  3. RESPLEN [Concomitant]
     Indication: INFLUENZA
     Dosage: 20MG THREE TIMES PER DAY
     Route: 048
     Dates: start: 20090128, end: 20090130

REACTIONS (2)
  - CONVULSION [None]
  - DELIRIUM [None]
